FAERS Safety Report 22033793 (Version 1)
Quarter: 2023Q1

REPORT INFORMATION
  Report Type: Spontaneous
  Country: US (occurrence: None)
  Receive Date: 20230222
  Receipt Date: 20230222
  Transmission Date: 20230417
  Serious: No
  Sender: FDA-Public Use
  Company Number: None

PATIENT
  Age: 60 Year
  Sex: Female
  Weight: 54.43 kg

DRUGS (2)
  1. BOTOX [Suspect]
     Active Substance: ONABOTULINUMTOXINA
     Indication: Hemiplegia
     Dosage: INJECT 300 UNITS INTRAMUSCULARLY INTO THE RIGHT UPPER EXTREMITY EVERY 3 MONTHS AS DIRECTED
     Route: 030
     Dates: start: 202208
  2. BOTOX [Suspect]
     Active Substance: ONABOTULINUMTOXINA
     Indication: Dermatitis

REACTIONS (1)
  - COVID-19 [None]
